FAERS Safety Report 21260400 (Version 1)
Quarter: 2022Q3

REPORT INFORMATION
  Report Type: Spontaneous
  Country: CN (occurrence: CN)
  Receive Date: 20220826
  Receipt Date: 20220826
  Transmission Date: 20221027
  Serious: Yes (Hospitalization)
  Sender: FDA-Public Use
  Company Number: None

PATIENT
  Age: 42 Year
  Sex: Female
  Weight: 58 kg

DRUGS (6)
  1. CYCLOPHOSPHAMIDE [Suspect]
     Active Substance: CYCLOPHOSPHAMIDE
     Indication: Invasive breast carcinoma
     Dosage: 0.93 G, QD, DILUTED WITH 0.9% SODIUM CHLORIDE 100ML
     Route: 041
     Dates: start: 20220720, end: 20220720
  2. CYCLOPHOSPHAMIDE [Suspect]
     Active Substance: CYCLOPHOSPHAMIDE
     Indication: Hormone receptor positive breast cancer
  3. SODIUM CHLORIDE [Suspect]
     Active Substance: SODIUM CHLORIDE
     Indication: Medication dilution
     Dosage: 100ML, QD, DILUTED IN CYCLOPHOSPHAMIDE 0.93G
     Route: 041
     Dates: start: 20220720, end: 20220720
  4. SODIUM CHLORIDE [Suspect]
     Active Substance: SODIUM CHLORIDE
     Dosage: 250ML, QD, DILUTED IN DOCETAXEL 116MG
     Route: 041
     Dates: start: 20220720, end: 20220720
  5. DOCETAXEL [Suspect]
     Active Substance: DOCETAXEL
     Indication: Invasive breast carcinoma
     Dosage: 116MG, QD, DILUTED WITH 0.9% SODIUM CHLORIDE 250ML
     Route: 041
     Dates: start: 20220720, end: 20220720
  6. DOCETAXEL [Suspect]
     Active Substance: DOCETAXEL
     Indication: Hormone receptor positive breast cancer

REACTIONS (2)
  - White blood cell count decreased [Recovering/Resolving]
  - Neutrophil count decreased [Recovering/Resolving]

NARRATIVE: CASE EVENT DATE: 20220728
